APPROVED DRUG PRODUCT: FIORINAL W/CODEINE
Active Ingredient: ASPIRIN; BUTALBITAL; CAFFEINE; CODEINE PHOSPHATE
Strength: 325MG;50MG;40MG;30MG **Federal Register determination that product was not discontinued or withdrawn for safety or effectiveness reasons**
Dosage Form/Route: CAPSULE;ORAL
Application: N019429 | Product #003
Applicant: ALLERGAN SALES LLC
Approved: Oct 26, 1990 | RLD: Yes | RS: No | Type: DISCN